FAERS Safety Report 13582619 (Version 1)
Quarter: 2017Q2

REPORT INFORMATION
  Report Type: Spontaneous
  Country: IT (occurrence: IT)
  Receive Date: 20170525
  Receipt Date: 20170525
  Transmission Date: 20170830
  Serious: Yes (Other)
  Sender: FDA-Public Use
  Company Number: IT-ALLERGAN-1721483US

PATIENT
  Age: 59 Year

DRUGS (3)
  1. TIGECYCLINE. [Concomitant]
     Active Substance: TIGECYCLINE
  2. COLISTIN [Concomitant]
     Active Substance: COLISTIN
     Indication: PRODUCT USED FOR UNKNOWN INDICATION
  3. CEFTAZIDIME;AVIBACTAM - BP [Suspect]
     Active Substance: AVIBACTAM SODIUM\CEFTAZIDIME
     Indication: PRODUCT USED FOR UNKNOWN INDICATION
     Dosage: 2.5 G, TID
     Route: 042

REACTIONS (4)
  - Chloroma [Unknown]
  - Disease progression [Unknown]
  - Pneumonia klebsiella [Unknown]
  - Septic shock [Unknown]
